FAERS Safety Report 17515234 (Version 1)
Quarter: 2020Q1

REPORT INFORMATION
  Report Type: Report from Study
  Country: DE (occurrence: DE)
  Receive Date: 20200309
  Receipt Date: 20200309
  Transmission Date: 20200409
  Serious: Yes (Hospitalization)
  Sender: FDA-Public Use
  Company Number: DE-ROCHE-2560957

PATIENT
  Age: 61 Year
  Sex: Male

DRUGS (3)
  1. VENETOCLAX. [Suspect]
     Active Substance: VENETOCLAX
     Indication: CHRONIC LYMPHOCYTIC LEUKAEMIA
     Dosage: INDUCTION: CYCLES 1 + 2: --; CYCLE 3: D1-7: 20MG, D8-14: 50MG, D15-21: 100MG, D22-28: 200MG P.O.; CY
     Route: 048
     Dates: start: 20190327
  2. ACALABRUTINIB. [Suspect]
     Active Substance: ACALABRUTINIB
     Indication: CHRONIC LYMPHOCYTIC LEUKAEMIA
     Dosage: INDUCTION: CYCLE 1: --; CYCLES 2 - 6: D1-28: 2 X 100MG P.O.?MAINTENANCE: CYCLE 1 - 8: D1-84: 2 X 100
     Route: 048
     Dates: start: 20190228
  3. OBINUTUZUMAB. [Suspect]
     Active Substance: OBINUTUZUMAB
     Indication: CHRONIC LYMPHOCYTIC LEUKAEMIA
     Dosage: INDUCTION: CYCLE 1: D1 - 100 MG, D1 (OR D2) - 900 MG, D8 + D15 - 1000 MG I.V.; CYCLE 2 - 6: 1000 MG,
     Route: 042
     Dates: start: 20190131

REACTIONS (1)
  - Gastrointestinal wall thickening [Unknown]
